FAERS Safety Report 6259772-6 (Version None)
Quarter: 2009Q3

REPORT INFORMATION
  Report Type: 
  Country: None (occurrence: None)
  Receive Date: 20090708
  Receipt Date: 20090625
  Transmission Date: 20100115
  Serious: Yes (Hospitalization)
  Sender: FDA-Public Use
  Company Number: FR-SOLVAY-00209003437

PATIENT
  Age: 29141 Day
  Sex: Male

DRUGS (5)
  1. COVERSYL NOS TABLET [Suspect]
     Indication: HYPERTENSION
     Dosage: DAILY DOSE:  UNKNOWN, FREQUENCY: ONCE A DAY
     Route: 048
     Dates: end: 20090415
  2. TRAMADOL HCL [Concomitant]
     Indication: DRUG USE FOR UNKNOWN INDICATION
     Dosage: DAILY DOSE:  UNKNOWN
     Route: 065
     Dates: start: 20090403
  3. GENTAMICIN [Suspect]
     Indication: DEVICE RELATED INFECTION
     Dosage: DAILY DOSE:  UNKNOWN
     Route: 042
     Dates: start: 20090407, end: 20090422
  4. ORBENIN CAP [Suspect]
     Indication: DEVICE RELATED INFECTION
     Dosage: DAILY DOSE:  UNKNOWN
     Route: 042
     Dates: start: 20090407
  5. KETOPROFEN [Suspect]
     Indication: PAIN IN EXTREMITY
     Dosage: DAILY DOSE:  UNKNOWN
     Route: 048
     Dates: start: 20090403, end: 20090407

REACTIONS (4)
  - DEVICE RELATED INFECTION [None]
  - PAIN IN EXTREMITY [None]
  - RENAL FAILURE [None]
  - THROMBOCYTOPENIA [None]
